FAERS Safety Report 5533436-6 (Version None)
Quarter: 2007Q4

REPORT INFORMATION
  Report Type: 
  Country: None (occurrence: None)
  Receive Date: 20071204
  Receipt Date: 20071125
  Transmission Date: 20080405
  Serious: Yes (Life-Threatening)
  Sender: FDA-Public Use
  Company Number: EG-PFIZER INC-2007099425

PATIENT
  Age: 35 Year
  Sex: Female

DRUGS (6)
  1. DIFLUCAN [Suspect]
     Indication: ANTIFUNGAL PROPHYLAXIS
     Route: 042
     Dates: start: 20071117, end: 20071117
  2. WARFARIN SODIUM [Concomitant]
     Indication: ANTICOAGULANT THERAPY
     Route: 048
  3. LASIX [Concomitant]
     Indication: HYPERTENSION
     Route: 048
  4. ALDACTONE [Concomitant]
     Indication: HYPERTENSION
     Route: 048
  5. CAPOTEN [Concomitant]
     Indication: HYPERTENSION
     Route: 048
  6. HEPARIN [Concomitant]
     Indication: ANTICOAGULANT THERAPY

REACTIONS (2)
  - FLUSHING [None]
  - LARYNGEAL OEDEMA [None]
